FAERS Safety Report 24713147 (Version 1)
Quarter: 2024Q4

REPORT INFORMATION
  Report Type: Spontaneous
  Country: US (occurrence: None)
  Receive Date: 20241209
  Receipt Date: 20241209
  Transmission Date: 20250115
  Serious: Yes (Hospitalization)
  Sender: Public
  Company Number: None

PATIENT
  Age: 79 Year
  Sex: Female
  Weight: 57.6 kg

DRUGS (1)
  1. POMALYST [Suspect]
     Active Substance: POMALIDOMIDE
     Indication: Plasma cell myeloma
     Dosage: FREQUENCY : DAILY;?
     Route: 048
     Dates: start: 20240208

REACTIONS (5)
  - Hypokalaemia [None]
  - Asthenia [None]
  - Dehydration [None]
  - Therapy change [None]
  - Acute kidney injury [None]

NARRATIVE: CASE EVENT DATE: 20241120
